FAERS Safety Report 15628882 (Version 2)
Quarter: 2018Q4

REPORT INFORMATION
  Report Type: Other
  Country: CN (occurrence: CN)
  Receive Date: 20181116
  Receipt Date: 20181129
  Transmission Date: 20190205
  Serious: Yes (Death, Life-Threatening)
  Sender: FDA-Public Use
  Company Number: CN-GE HEALTHCARE LIFE SCIENCES-2018CSU004626

PATIENT

DRUGS (1)
  1. OMNIPAQUE [Suspect]
     Active Substance: IOHEXOL
     Indication: GASTROINTESTINAL LYMPHOMA
     Dosage: 80 ML, SINGLE
     Route: 042
     Dates: start: 20180918, end: 20180918

REACTIONS (7)
  - Seizure [Unknown]
  - Cardiac arrest [Fatal]
  - Coma [Fatal]
  - Loss of consciousness [Not Recovered/Not Resolved]
  - Cyanosis [Unknown]
  - Arrhythmia [Not Recovered/Not Resolved]
  - Dyspnoea [Unknown]

NARRATIVE: CASE EVENT DATE: 20180918
